FAERS Safety Report 8247778 (Version 2)
Quarter: 2013Q2

REPORT INFORMATION
  Report Type: Spontaneous
  Country: AU (occurrence: AU)
  Receive Date: 20111116
  Receipt Date: 20130605
  Transmission Date: 20140414
  Serious: Yes (Hospitalization)
  Sender: FDA-Public Use
  Company Number: AU-B.I. PHARMACEUTICALS,INC./RIDGEFIELD-2011-AU-02073AU

PATIENT
  Age: 50 Year
  Sex: Female

DRUGS (3)
  1. PRADAXA [Suspect]
     Indication: ATRIAL FIBRILLATION
     Dosage: 300 MG
  2. CARBAMAZEPINE [Suspect]
     Indication: TEMPORAL LOBE EPILEPSY
     Dosage: 800 MG
  3. METOPROLOL [Concomitant]

REACTIONS (2)
  - Intracardiac thrombus [Recovered/Resolved]
  - Off label use [Unknown]
